FAERS Safety Report 9167773 (Version 1)
Quarter: 2013Q1

REPORT INFORMATION
  Report Type: Spontaneous
  Country: US (occurrence: None)
  Receive Date: 20130314
  Receipt Date: 20130314
  Transmission Date: 20140127
  Serious: Yes (Death, Hospitalization)
  Sender: FDA-Public Use
  Company Number: IPC201303-000064

PATIENT
  Age: 39 Year
  Sex: Male

DRUGS (1)
  1. METFORMIN HYDROCHLORIDE [Suspect]

REACTIONS (7)
  - Lactic acidosis [None]
  - Hypotension [None]
  - Renal failure [None]
  - Acute respiratory distress syndrome [None]
  - Transaminases increased [None]
  - Cardiac arrest [None]
  - Intentional overdose [None]
